FAERS Safety Report 9703088 (Version 4)
Quarter: 2014Q3

REPORT INFORMATION
  Report Type: Report from Study
  Country: BR (occurrence: BR)
  Receive Date: 20131122
  Receipt Date: 20140904
  Transmission Date: 20150326
  Serious: Yes (Hospitalization)
  Sender: FDA-Public Use
  Company Number: BR-BIOGENIDEC-2013BI112196

PATIENT
  Age: 21 Year
  Sex: Female

DRUGS (7)
  1. DIANE 35 (CYPROTERONE ACETATE AND ETHINYL ESTRADIOL) [Concomitant]
  2. IRON [Concomitant]
     Active Substance: IRON
  3. IBUPROFEN. [Concomitant]
     Active Substance: IBUPROFEN
     Indication: PREMEDICATION
  4. LIPBLOCK (ORLISTAT) [Concomitant]
  5. AVONEX [Suspect]
     Active Substance: INTERFERON BETA-1A
     Indication: MULTIPLE SCLEROSIS
     Route: 030
     Dates: start: 201312, end: 201406
  6. AVONEX [Suspect]
     Active Substance: INTERFERON BETA-1A
     Indication: MULTIPLE SCLEROSIS
     Route: 030
     Dates: start: 20130120, end: 201311
  7. GLIFAGE [Concomitant]
     Active Substance: METFORMIN HYDROCHLORIDE
     Route: 048

REACTIONS (14)
  - Mammoplasty [Recovered/Resolved]
  - Serum ferritin decreased [Not Recovered/Not Resolved]
  - Hypothyroidism [Not Recovered/Not Resolved]
  - Hypercholesterolaemia [Not Recovered/Not Resolved]
  - Nausea [Recovered/Resolved]
  - Injection site erythema [Not Recovered/Not Resolved]
  - Impaired healing [Recovered/Resolved]
  - Incision site rash [Unknown]
  - Pain [Recovered/Resolved]
  - Fatigue [Recovered/Resolved]
  - Incision site vesicles [Unknown]
  - Pyrexia [Recovered/Resolved]
  - Incision site erythema [Recovered/Resolved]
  - Vitamin B12 deficiency [Not Recovered/Not Resolved]

NARRATIVE: CASE EVENT DATE: 201301
